FAERS Safety Report 8195554-6 (Version None)
Quarter: 2012Q1

REPORT INFORMATION
  Report Type: 
  Country: None (occurrence: None)
  Receive Date: 20120308
  Receipt Date: 20120306
  Transmission Date: 20120608
  Serious: Yes (Death)
  Sender: FDA-Public Use
  Company Number: PHHY2012AU001171

PATIENT
  Sex: Female
  Weight: 74 kg

DRUGS (9)
  1. CORTATE [Concomitant]
     Dosage: 0.5 DF, UNK
  2. HUMALOG [Concomitant]
     Dosage: 845 UKN, BID
     Route: 058
  3. SANDOSTATIN LAR [Suspect]
     Indication: CARCINOID SYNDROME
     Dosage: 30 MG, UNK
     Route: 030
  4. ACIMAX [Concomitant]
     Dosage: 20 MG, DAILY
     Route: 048
  5. LIPITOR [Concomitant]
     Dosage: 20 MG, DAILY
     Route: 048
  6. METFORMIN HCL [Concomitant]
     Dosage: 500 MG, QID
     Route: 048
  7. LEVOTHYROXINE SODIUM [Concomitant]
     Dosage: 125 MG, DAILY
     Route: 048
  8. VITAMIN D [Concomitant]
  9. SYMBICORT [Concomitant]
     Dosage: 400 UG, BID

REACTIONS (6)
  - NEOPLASM PROGRESSION [None]
  - GAMMA-GLUTAMYLTRANSFERASE INCREASED [None]
  - NEOPLASM MALIGNANT [None]
  - HAEMOGLOBIN DECREASED [None]
  - BLOOD POTASSIUM DECREASED [None]
  - BLOOD ALBUMIN DECREASED [None]
